FAERS Safety Report 15965529 (Version 2)
Quarter: 2021Q1

REPORT INFORMATION
  Report Type: Spontaneous
  Country: US (occurrence: US)
  Receive Date: 20190215
  Receipt Date: 20210323
  Transmission Date: 20210419
  Serious: Yes (Disabling, Other)
  Sender: FDA-Public Use
  Company Number: US-TEVA-2019-US-1011305

PATIENT
  Age: 62 Year
  Sex: Female
  Weight: 102 kg

DRUGS (19)
  1. AMLODIPINE [Concomitant]
     Active Substance: AMLODIPINE BESYLATE
     Route: 065
     Dates: start: 20150101
  2. CRESTOR [Concomitant]
     Active Substance: ROSUVASTATIN CALCIUM
     Route: 048
     Dates: start: 20180408
  3. ALOXI [Concomitant]
     Active Substance: PALONOSETRON HYDROCHLORIDE
     Dosage: ONCE
     Route: 042
     Dates: start: 20150531, end: 20150531
  4. NEULASTA [Concomitant]
     Active Substance: PEGFILGRASTIM
     Dosage: ONCE
     Route: 058
     Dates: start: 20150704, end: 20150704
  5. DULOXETINE HCL [Concomitant]
     Active Substance: DULOXETINE HYDROCHLORIDE
     Route: 065
     Dates: start: 20150701
  6. CRESTOR [Concomitant]
     Active Substance: ROSUVASTATIN CALCIUM
     Route: 065
     Dates: start: 20050101
  7. TRIAMTERENE AND HYDROCHLOROTHIAZIDE [Concomitant]
     Active Substance: HYDROCHLOROTHIAZIDE\TRIAMTERENE
     Dosage: 1 QAM
     Route: 048
  8. TRASTUZUMAB. [Concomitant]
     Active Substance: TRASTUZUMAB
     Indication: BREAST CANCER FEMALE
     Route: 065
  9. ENALAPRIL [Concomitant]
     Active Substance: ENALAPRIL
     Route: 065
     Dates: start: 20050101
  10. PARAPLATIN [Concomitant]
     Active Substance: CARBOPLATIN
     Indication: BREAST CANCER FEMALE
     Route: 065
  11. ALBUTEROL. [Concomitant]
     Active Substance: ALBUTEROL
     Route: 065
     Dates: start: 20050101
  12. NEULASTA [Concomitant]
     Active Substance: PEGFILGRASTIM
     Dosage: ONCE
     Route: 058
     Dates: start: 20150412, end: 20150412
  13. DOCETAXEL SAGENT [Suspect]
     Active Substance: DOCETAXEL
     Indication: BREAST CANCER FEMALE
     Dosage: NUMBER OF CYCLE ? 06
     Route: 065
     Dates: start: 20150410, end: 20150724
  14. PERTUZUMAB. [Concomitant]
     Active Substance: PERTUZUMAB
     Route: 065
  15. NEULASTA [Concomitant]
     Active Substance: PEGFILGRASTIM
     Dosage: ONCE
     Route: 058
     Dates: start: 20150524, end: 20150524
  16. NEULASTA [Concomitant]
     Active Substance: PEGFILGRASTIM
     Dosage: ONCE
     Route: 058
     Dates: start: 20150614, end: 20150614
  17. NEULASTA [Concomitant]
     Active Substance: PEGFILGRASTIM
     Dosage: ONCE
     Route: 058
     Dates: start: 20150726, end: 20150726
  18. HERCEPTIN [Concomitant]
     Active Substance: TRASTUZUMAB
     Indication: BREAST CANCER FEMALE
     Dosage: 1 YEAR
     Route: 065
  19. LORAZEPAM. [Concomitant]
     Active Substance: LORAZEPAM
     Route: 065

REACTIONS (23)
  - Madarosis [Not Recovered/Not Resolved]
  - Palmar-plantar erythrodysaesthesia syndrome [Unknown]
  - Nail ridging [Unknown]
  - Skin lesion [Unknown]
  - Tongue ulceration [Unknown]
  - Skin exfoliation [Unknown]
  - Dysphonia [Unknown]
  - Eyelids pruritus [Unknown]
  - Alopecia areata [Not Recovered/Not Resolved]
  - Hair texture abnormal [Not Recovered/Not Resolved]
  - Oral pain [Recovering/Resolving]
  - Eyelid pain [Unknown]
  - Seborrhoeic keratosis [Unknown]
  - Hair colour changes [Not Recovered/Not Resolved]
  - Pruritus [Unknown]
  - Acrochordon [Unknown]
  - Pharyngeal erythema [Unknown]
  - Oedema peripheral [Recovered/Resolved]
  - Neuropathy peripheral [Unknown]
  - Dry eye [Unknown]
  - Diarrhoea [Recovered/Resolved]
  - Nausea [Recovered/Resolved]
  - Rash [Recovering/Resolving]

NARRATIVE: CASE EVENT DATE: 20160124
